FAERS Safety Report 4522121-5 (Version None)
Quarter: 2004Q4

REPORT INFORMATION
  Report Type: 
  Country: None (occurrence: None)
  Receive Date: 20041207
  Receipt Date: 20041001
  Transmission Date: 20050328
  Serious: Yes (Hospitalization)
  Sender: FDA-Public Use
  Company Number: US013524

PATIENT
  Age: 78 Year
  Sex: Female
  Weight: 51.7101 kg

DRUGS (14)
  1. ACTIQ [Suspect]
     Indication: MIGRAINE
     Dosage: 800 UG PRN BUCCAL
     Route: 002
     Dates: start: 20040310, end: 20040622
  2. ATIVAN [Concomitant]
  3. NORVASC [Concomitant]
  4. LISINOPRIL [Concomitant]
  5. CELEXA [Concomitant]
  6. LIPITOR [Concomitant]
  7. ATENOLOL [Concomitant]
  8. ZOFRAN [Concomitant]
  9. HYDROCODONE/APAP [Concomitant]
  10. PROTONIX [Concomitant]
  11. PLAVIX [Concomitant]
  12. CLONIDINE [Concomitant]
  13. LORAZEPAM [Concomitant]
  14. NEURONTIN [Concomitant]

REACTIONS (14)
  - ANXIETY [None]
  - BURNING SENSATION [None]
  - DISEASE RECURRENCE [None]
  - DRUG WITHDRAWAL SYNDROME [None]
  - DRY MOUTH [None]
  - DYSAESTHESIA [None]
  - DYSPNOEA [None]
  - GLOSSODYNIA [None]
  - HYPOAESTHESIA [None]
  - HYPOAESTHESIA ORAL [None]
  - MENTAL DISORDER [None]
  - MIGRAINE [None]
  - PAIN [None]
  - PERIPHERAL SENSORY NEUROPATHY [None]
